FAERS Safety Report 14230287 (Version 1)
Quarter: 2017Q4

REPORT INFORMATION
  Report Type: Spontaneous
  Country: AU (occurrence: AU)
  Receive Date: 20171128
  Receipt Date: 20171128
  Transmission Date: 20180321
  Serious: Yes (Life-Threatening, Hospitalization, Other)
  Sender: FDA-Public Use
  Company Number: AU-MYLANLABS-2017M1073840

PATIENT
  Age: 20 Year
  Sex: Male

DRUGS (2)
  1. BUPRENORPHINE. [Suspect]
     Active Substance: BUPRENORPHINE
     Indication: DRUG DEPENDENCE
     Dosage: SUBLINGUAL BUPRENORPHINE USED AS IV; INJECTED THRICE
     Route: 060
  2. BUPRENORPHINE. [Suspect]
     Active Substance: BUPRENORPHINE
     Dosage: SUBLINGUAL BUPRENORPHINE USED AS IV; INJECTED THRICE
     Route: 042

REACTIONS (3)
  - Multiple organ dysfunction syndrome [Recovering/Resolving]
  - Intentional product use issue [Recovering/Resolving]
  - Acute hepatic failure [Recovering/Resolving]
